FAERS Safety Report 4802514-9 (Version None)
Quarter: 2005Q4

REPORT INFORMATION
  Report Type: 
  Country: None (occurrence: None)
  Receive Date: 20051018
  Receipt Date: 20050414
  Transmission Date: 20060501
  Serious: Yes (Disabling, Other)
  Sender: FDA-Public Use
  Company Number: US-MERCK-0504USA02631

PATIENT
  Age: 33 Year
  Sex: Female
  Weight: 55 kg

DRUGS (7)
  1. VIOXX [Suspect]
     Indication: SARCOIDOSIS
     Route: 048
     Dates: start: 19990101, end: 20040901
  2. PREDNISONE [Concomitant]
     Route: 065
  3. ASPIRIN [Concomitant]
     Route: 065
  4. DEMEROL [Concomitant]
     Route: 065
  5. PLAQUENIL [Concomitant]
     Route: 065
  6. AMITRIPTYLINE HYDROCHLORIDE [Concomitant]
     Route: 065
  7. CELEBREX [Concomitant]
     Route: 065

REACTIONS (9)
  - ANXIETY [None]
  - CEREBROVASCULAR ACCIDENT [None]
  - CONVULSION [None]
  - DEEP VEIN THROMBOSIS [None]
  - FIBROMYALGIA [None]
  - NEOPLASM [None]
  - OEDEMA PERIPHERAL [None]
  - POLYTRAUMATISM [None]
  - PULMONARY EMBOLISM [None]
